FAERS Safety Report 5211865-8 (Version None)
Quarter: 2007Q1

REPORT INFORMATION
  Report Type: 
  Country: None (occurrence: None)
  Receive Date: 20070116
  Receipt Date: 20070108
  Transmission Date: 20070707
  Serious: Yes (Life-Threatening, Hospitalization, Other)
  Sender: FDA-Public Use
  Company Number: HQWYE712108JAN07

PATIENT
  Age: 74 Year
  Sex: Male

DRUGS (9)
  1. CORDARONE [Suspect]
     Indication: ATRIAL FIBRILLATION
     Dosage: UNSPECIFIED ORAL
     Route: 048
     Dates: start: 20050513, end: 20060831
  2. DIGOXIN [Suspect]
     Indication: ATRIAL FIBRILLATION
     Dosage: 0.13 MG 1X PER 1 DAY ORAL
     Route: 048
     Dates: end: 20060831
  3. ENALAPRIL MALEATE [Concomitant]
  4. SIMVASTATIN [Concomitant]
  5. WARAN (WARAFARIN SODIUM) [Concomitant]
  6. FUROSEMIDE [Concomitant]
  7. STILNOCT (ZOLPIDEM TARTRATE) [Concomitant]
  8. CARVEDILOL [Concomitant]
  9. PANTOPRAZOLE SODIUM [Concomitant]

REACTIONS (3)
  - BRADYCARDIA [None]
  - CARDIAC ARREST [None]
  - DRUG INTERACTION [None]
